FAERS Safety Report 18936799 (Version 1)
Quarter: 2021Q1

REPORT INFORMATION
  Report Type: Spontaneous
  Country: US (occurrence: US)
  Receive Date: 20210225
  Receipt Date: 20210225
  Transmission Date: 20210420
  Serious: Yes (Hospitalization, Other)
  Sender: FDA-Public Use
  Company Number: US-ASTRAZENECA-2021A065793

PATIENT
  Sex: Male

DRUGS (4)
  1. VENLAFAXINE [Interacting]
     Active Substance: VENLAFAXINE HYDROCHLORIDE
     Route: 064
  2. QUETIAPINE. [Suspect]
     Active Substance: QUETIAPINE
     Route: 064
  3. BUPROPION HYDROCHLORIDE. [Interacting]
     Active Substance: BUPROPION HYDROCHLORIDE
     Route: 064
  4. GABAPENTIN. [Suspect]
     Active Substance: GABAPENTIN
     Route: 064

REACTIONS (7)
  - Drug interaction [Unknown]
  - Hypotonia [Recovering/Resolving]
  - Toxicity to various agents [Unknown]
  - Movement disorder [Recovering/Resolving]
  - Foetal exposure during pregnancy [Unknown]
  - Hyperreflexia [Recovering/Resolving]
  - Encephalopathy [Recovering/Resolving]
